FAERS Safety Report 5016300-0 (Version None)
Quarter: 2006Q2

REPORT INFORMATION
  Report Type: 
  Country: None (occurrence: None)
  Receive Date: 20060414
  Receipt Date: 20060125
  Transmission Date: 20061013
  Serious: No
  Sender: FDA-Public Use
  Company Number: 2006SP000435

PATIENT
  Age: 45 Year
  Sex: Female
  Weight: 68.0396 kg

DRUGS (3)
  1. LUNESTA [Suspect]
     Indication: INSOMNIA
     Dosage: 3 MG;PRN;ORAL
     Route: 048
     Dates: start: 20050101
  2. MULTI-VITAMINS [Concomitant]
  3. EVENING PRIMROSE OIL [Concomitant]

REACTIONS (2)
  - HEPATIC ENZYME INCREASED [None]
  - NAUSEA [None]
